FAERS Safety Report 18611395 (Version 1)
Quarter: 2020Q4

REPORT INFORMATION
  Report Type: Spontaneous
  Country: US (occurrence: US)
  Receive Date: 20201204
  Receipt Date: 20201204
  Transmission Date: 20210114
  Serious: Yes (Hospitalization)
  Sender: FDA-Public Use
  Company Number: None

PATIENT
  Age: 88 Year
  Sex: Male
  Weight: 64.5 kg

DRUGS (3)
  1. CASIRIVIMAB. [Concomitant]
     Active Substance: CASIRIVIMAB
     Dates: start: 20201204, end: 20201204
  2. LMDEVIMAB [Concomitant]
     Dates: start: 20201204, end: 20201204
  3. CASIRIVIMAB AND IMDEVIMAB [Suspect]
     Active Substance: CASIRIVIMAB\IMDEVIMAB
     Indication: SARS-COV-2 TEST POSITIVE
     Route: 041
     Dates: start: 20201204, end: 20201204

REACTIONS (9)
  - Throat irritation [None]
  - Body temperature increased [None]
  - Tachycardia [None]
  - Secretion discharge [None]
  - Anxiety [None]
  - Infusion related reaction [None]
  - Pain [None]
  - Respiratory rate increased [None]
  - Feeling cold [None]

NARRATIVE: CASE EVENT DATE: 20201204
